FAERS Safety Report 15617703 (Version 4)
Quarter: 2020Q2

REPORT INFORMATION
  Report Type: Spontaneous
  Country: US (occurrence: US)
  Receive Date: 20181114
  Receipt Date: 20200527
  Transmission Date: 20200713
  Serious: Yes (Other)
  Sender: FDA-Public Use
  Company Number: US-PFIZER INC-2018446803

PATIENT
  Age: 48 Year
  Sex: Male

DRUGS (1)
  1. LYRICA [Suspect]
     Active Substance: PREGABALIN
     Indication: NEUROPATHY PERIPHERAL
     Dosage: 150 MG, 3X/DAY
     Route: 048

REACTIONS (4)
  - Ankle fracture [Unknown]
  - Sleep deficit [Unknown]
  - Neuropathy peripheral [Unknown]
  - Pruritus [Unknown]
